FAERS Safety Report 7312057-9 (Version None)
Quarter: 2011Q1

REPORT INFORMATION
  Report Type: 
  Country: None (occurrence: None)
  Receive Date: 20110224
  Receipt Date: 20100719
  Transmission Date: 20110831
  Serious: Yes (Other)
  Sender: FDA-Public Use
  Company Number: US-BRISTOL-MYERS SQUIBB COMPANY-15199474

PATIENT
  Age: 50 Year
  Sex: Female
  Weight: 88 kg

DRUGS (3)
  1. AVASTIN [Suspect]
  2. HERCEPTIN [Suspect]
  3. TAXOL [Suspect]
     Indication: BREAST CANCER STAGE IV
     Dates: start: 20100101

REACTIONS (3)
  - NEUROPATHY PERIPHERAL [None]
  - BALANCE DISORDER [None]
  - CYSTITIS [None]
